FAERS Safety Report 19920367 (Version 1)
Quarter: 2021Q4

REPORT INFORMATION
  Report Type: Spontaneous
  Country: IT (occurrence: IT)
  Receive Date: 20211005
  Receipt Date: 20211005
  Transmission Date: 20220303
  Serious: Yes (Other)
  Sender: FDA-Public Use
  Company Number: None

PATIENT
  Age: 51 Year
  Sex: Male
  Weight: 56 kg

DRUGS (4)
  1. PACLITAXEL [Suspect]
     Active Substance: PACLITAXEL
     Indication: Penis carcinoma metastatic
     Dosage: 280 MG
     Dates: start: 20210721
  2. CISPLATIN [Concomitant]
     Active Substance: CISPLATIN
     Indication: Penis carcinoma metastatic
     Dosage: 40 MG
     Dates: start: 20210721
  3. MESNA [Concomitant]
     Active Substance: MESNA
     Indication: Penis carcinoma metastatic
     Dosage: 640 MG
     Route: 042
     Dates: start: 20210721
  4. HOLOXAN 1 G POLVERE PER SOLUZIONE PER INFUSIONE [Concomitant]
     Indication: Penis carcinoma stage IV
     Dosage: 1920 MG
     Dates: start: 20210721

REACTIONS (4)
  - Photopsia [Recovered/Resolved]
  - Hypersensitivity [Recovered/Resolved]
  - Skin reaction [Recovered/Resolved]
  - Feeling hot [Recovered/Resolved]

NARRATIVE: CASE EVENT DATE: 20210812
